FAERS Safety Report 19443245 (Version 2)
Quarter: 2021Q4

REPORT INFORMATION
  Report Type: Spontaneous
  Country: US (occurrence: US)
  Receive Date: 20210621
  Receipt Date: 20211125
  Transmission Date: 20220303
  Serious: Yes (Other)
  Sender: FDA-Public Use
  Company Number: US-SA-SAC20210617000160

PATIENT
  Age: 9 Year
  Sex: Male

DRUGS (4)
  1. ALPROLIX [Suspect]
     Active Substance: EFTRENONACOG ALFA
     Indication: Prophylaxis
     Dosage: 1170 U
     Route: 042
  2. ALPROLIX [Suspect]
     Active Substance: EFTRENONACOG ALFA
     Indication: Prophylaxis
     Dosage: 1170 U
     Route: 042
  3. ALPROLIX [Suspect]
     Active Substance: EFTRENONACOG ALFA
     Indication: Haemorrhage
     Dosage: 3000 IU, QW FOR PROPHY AND EVERY OTHER DAY BREAKTHROUGH BLEEDING
     Route: 042
  4. ALPROLIX [Suspect]
     Active Substance: EFTRENONACOG ALFA
     Indication: Haemorrhage
     Dosage: 3000 IU, QW FOR PROPHY AND EVERY OTHER DAY BREAKTHROUGH BLEEDING
     Route: 042

REACTIONS (4)
  - Haemorrhage [Recovered/Resolved]
  - Lip injury [Recovered/Resolved]
  - Lip haemorrhage [Recovered/Resolved]
  - Dental care [Recovered/Resolved]

NARRATIVE: CASE EVENT DATE: 20210520
